FAERS Safety Report 13814780 (Version 1)
Quarter: 2017Q3

REPORT INFORMATION
  Report Type: Spontaneous
  Country: US (occurrence: US)
  Receive Date: 20170731
  Receipt Date: 20170731
  Transmission Date: 20171127
  Serious: Yes (Hospitalization, Other)
  Sender: FDA-Public Use
  Company Number: US-ASTELLAS-2017US029598

PATIENT
  Age: 55 Year
  Sex: Male

DRUGS (4)
  1. HALOPERIDOL. [Suspect]
     Active Substance: HALOPERIDOL
     Dosage: 0.5 MG, TWICE DAILY (AS NEEDED)
     Route: 042
  2. TACROLIMUS. [Suspect]
     Active Substance: TACROLIMUS
     Indication: GRAFT VERSUS HOST DISEASE IN LIVER
     Dosage: UNK UNK, UNKNOWN FREQ.
     Route: 065
  3. TACROLIMUS. [Suspect]
     Active Substance: TACROLIMUS
     Indication: GRAFT VERSUS HOST DISEASE IN GASTROINTESTINAL TRACT
  4. HALOPERIDOL. [Suspect]
     Active Substance: HALOPERIDOL
     Indication: DELIRIUM
     Dosage: 0.5 MG, TWICE DAILY
     Route: 042

REACTIONS (7)
  - Delirium [Unknown]
  - Akathisia [Recovered/Resolved]
  - Graft versus host disease in gastrointestinal tract [Unknown]
  - Acute kidney injury [Unknown]
  - Graft versus host disease in liver [Unknown]
  - Hallucination [Unknown]
  - Off label use [Unknown]
